FAERS Safety Report 13021963 (Version 2)
Quarter: 2017Q1

REPORT INFORMATION
  Report Type: Spontaneous
  Country: GB (occurrence: GB)
  Receive Date: 20161213
  Receipt Date: 20170116
  Transmission Date: 20170428
  Serious: Yes (Disabling, Other)
  Sender: FDA-Public Use
  Company Number: GB-AUROBINDO-AUR-APL-2016-14941

PATIENT
  Age: 48 Year
  Sex: Female
  Weight: 61.68 kg

DRUGS (4)
  1. SYMBICORT [Concomitant]
     Active Substance: BUDESONIDE\FORMOTEROL FUMARATE DIHYDRATE
     Indication: ASTHMA PROPHYLAXIS
     Dosage: UNK
     Route: 055
  2. SERTRALINE [Suspect]
     Active Substance: SERTRALINE HYDROCHLORIDE
     Indication: DEPRESSION
     Dosage: EVERY MORNING
     Route: 048
     Dates: start: 20160421
  3. VENTOLIN [Concomitant]
     Active Substance: ALBUTEROL SULFATE
     Indication: ASTHMA
     Dosage: 200 ?G, UNK
     Route: 055
  4. SERTRALINE 50MG [Suspect]
     Active Substance: SERTRALINE HYDROCHLORIDE
     Indication: DEPRESSION
     Dosage: 50 MG, ONCE A DAY
     Route: 048
     Dates: start: 20160421

REACTIONS (34)
  - Fatigue [Unknown]
  - Palpitations [Unknown]
  - Paranoia [Not Recovered/Not Resolved]
  - Hyperventilation [Unknown]
  - Diarrhoea [Not Recovered/Not Resolved]
  - Malaise [Unknown]
  - Nausea [Unknown]
  - Abasia [Not Recovered/Not Resolved]
  - Psychomotor hyperactivity [Unknown]
  - Delusion [Unknown]
  - Insomnia [Not Recovered/Not Resolved]
  - Depressed mood [Not Recovered/Not Resolved]
  - Abnormal loss of weight [Not Recovered/Not Resolved]
  - Lethargy [Unknown]
  - Panic attack [Unknown]
  - Myalgia [Unknown]
  - Anxiety [Not Recovered/Not Resolved]
  - Hallucination [Unknown]
  - Obsessive-compulsive disorder [Not Recovered/Not Resolved]
  - Depression [Unknown]
  - Asthma [Unknown]
  - Speech disorder [Not Recovered/Not Resolved]
  - Confusional state [Unknown]
  - Condition aggravated [Unknown]
  - Syncope [Unknown]
  - Mania [Unknown]
  - Sensory disturbance [Unknown]
  - Vision blurred [Unknown]
  - Amnesia [Unknown]
  - Dysmorphism [Unknown]
  - Fear [Unknown]
  - Muscle spasms [Unknown]
  - Bone pain [Unknown]
  - Headache [Not Recovered/Not Resolved]

NARRATIVE: CASE EVENT DATE: 20160208
